FAERS Safety Report 5865361-5 (Version None)
Quarter: 2008Q3

REPORT INFORMATION
  Report Type: 
  Country: None (occurrence: None)
  Receive Date: 20080829
  Receipt Date: 20080820
  Transmission Date: 20090109
  Serious: Yes (Hospitalization)
  Sender: FDA-Public Use
  Company Number: JP-ABBOTT-08P-087-0462406-00

PATIENT
  Sex: Male
  Weight: 59 kg

DRUGS (19)
  1. HUMIRA [Suspect]
     Indication: CROHN'S DISEASE
     Route: 058
     Dates: start: 20071218, end: 20080722
  2. HUMIRA [Suspect]
     Route: 058
     Dates: start: 20080804
  3. MESALAMINE [Concomitant]
     Indication: CROHN'S DISEASE
     Route: 048
     Dates: start: 20070625, end: 20080703
  4. MESALAMINE [Concomitant]
     Route: 048
     Dates: start: 20080713, end: 20080718
  5. MESALAMINE [Concomitant]
     Route: 048
     Dates: start: 20080804
  6. ELENTAL [Concomitant]
     Indication: CROHN'S DISEASE
     Route: 048
     Dates: start: 20070625, end: 20080703
  7. ELENTAL [Concomitant]
     Route: 048
     Dates: start: 20080708, end: 20080709
  8. ELENTAL [Concomitant]
     Route: 048
     Dates: start: 20080710, end: 20080718
  9. ELENTAL [Concomitant]
     Route: 048
     Dates: start: 20080726, end: 20080731
  10. ELENTAL [Concomitant]
     Route: 048
     Dates: start: 20080801
  11. POLYCARBOPHIL CALCIUM [Concomitant]
     Indication: DIARRHOEA
     Route: 048
     Dates: start: 20070625, end: 20080703
  12. POLYCARBOPHIL CALCIUM [Concomitant]
     Route: 048
     Dates: start: 20080713, end: 20080714
  13. POLYCARBOPHIL CALCIUM [Concomitant]
     Route: 048
     Dates: start: 20080804
  14. PHELLOBERIN [Concomitant]
     Indication: DIARRHOEA
     Route: 048
     Dates: start: 20070625, end: 20080703
  15. PHELLOBERIN [Concomitant]
     Route: 048
     Dates: start: 20080713, end: 20080718
  16. PHELLOBERIN [Concomitant]
     Route: 048
     Dates: start: 20080804
  17. FERROUS CITRATE [Concomitant]
     Indication: ANAEMIA
     Route: 048
     Dates: start: 20070625, end: 20080703
  18. FERROUS CITRATE [Concomitant]
     Route: 048
     Dates: start: 20080713, end: 20080718
  19. FERROUS CITRATE [Concomitant]
     Route: 048
     Dates: start: 20080804

REACTIONS (1)
  - INTESTINAL OBSTRUCTION [None]
